FAERS Safety Report 6270493-6 (Version None)
Quarter: 2009Q3

REPORT INFORMATION
  Report Type: 
  Country: None (occurrence: None)
  Receive Date: 20090716
  Receipt Date: 20090714
  Transmission Date: 20100115
  Serious: Yes (Death, Other)
  Sender: FDA-Public Use
  Company Number: ES-BRISTOL-MYERS SQUIBB COMPANY-14701460

PATIENT
  Age: 83 Year
  Sex: Male

DRUGS (2)
  1. APROVEL FILM-COATED TABS [Suspect]
     Indication: CARDIAC DISORDER
     Route: 065
     Dates: start: 20030101, end: 20090120
  2. DINISOR [Suspect]
     Indication: CARDIAC DISORDER
     Dosage: HARD, PROLONGED RELEASE CAPSULE GENERIC:DILTIAZEM RETARD
     Route: 048
     Dates: start: 20030101, end: 20090120

REACTIONS (5)
  - ASTHENIA [None]
  - BRADYCARDIA [None]
  - CARDIO-RESPIRATORY ARREST [None]
  - DIZZINESS [None]
  - HYPERKALAEMIA [None]
